FAERS Safety Report 6905173-4 (Version None)
Quarter: 2010Q3

REPORT INFORMATION
  Report Type: 
  Country: None (occurrence: None)
  Receive Date: 20100804
  Receipt Date: 20091207
  Transmission Date: 20110219
  Serious: No
  Sender: FDA-Public Use
  Company Number: US-PFIZER INC-2009247273

PATIENT
  Sex: Female
  Weight: 79.4 kg

DRUGS (12)
  1. LYRICA [Suspect]
     Indication: RESTLESS LEGS SYNDROME
     Dosage: 50MG IN MORNING AND 100MG AT NIGHT
     Dates: start: 20090623
  2. ALPRAZOLAM [Concomitant]
     Dosage: 1.5 MG, UNK
  3. LEVOTHYROXINE SODIUM [Concomitant]
     Indication: HYPERTHYROIDISM
     Dosage: 100 UG, UNK
  4. THYROXIN T3 [Concomitant]
     Indication: HYPERTHYROIDISM
     Dosage: 5 UG, 2X/DAY
  5. ATENOLOL AND CHLORTHALIDONE [Concomitant]
     Indication: HYPERTENSION
     Dosage: ONE HALF PER DAY
  6. PREVACID [Concomitant]
     Dosage: 30 MG, 1X/DAY
  7. LAMICTAL [Concomitant]
     Dosage: 75 MG, UNK
  8. EZETIMIBE [Concomitant]
     Dosage: UNK
  9. VYTORIN [Concomitant]
     Dosage: 80 MG/DAY
  10. ASPIRIN [Concomitant]
     Dosage: 10 MG, UNK
  11. ESTRADIOL [Concomitant]
     Dosage: 1.5 MG, UNK
  12. PROGESTERONE [Concomitant]
     Dosage: 75 MG, UNK

REACTIONS (2)
  - ANAEMIA [None]
  - SOMNOLENCE [None]
